FAERS Safety Report 8113442-8 (Version None)
Quarter: 2012Q1

REPORT INFORMATION
  Report Type: 
  Country: None (occurrence: None)
  Receive Date: 20120203
  Receipt Date: 20120112
  Transmission Date: 20120608
  Serious: Yes (Life-Threatening, Hospitalization, Disabling, Other)
  Sender: FDA-Public Use
  Company Number: US-PFIZER INC-001-0991-M0002099

PATIENT
  Sex: Female
  Weight: 104 kg

DRUGS (35)
  1. LASIX [Concomitant]
     Dates: start: 19940701
  2. DIPROLENE ASCR [Concomitant]
  3. DEMADEX [Concomitant]
     Dates: start: 20001111
  4. REZULIN [Suspect]
     Dosage: DAILY
     Route: 065
     Dates: start: 19980113, end: 19980427
  5. PREGABALIN [Suspect]
     Indication: DIABETIC NEUROPATHY
     Dosage: 600 MG, 1X/DAY
     Route: 048
  6. GLUCOPHAGE [Suspect]
     Indication: DIABETES MELLITUS
     Dosage: 500 MG, 2X/DAY
     Route: 065
     Dates: start: 19990501, end: 19991213
  7. GLUCOPHAGE [Suspect]
     Dosage: UNK
     Dates: start: 19991214
  8. NPH INSULIN [Concomitant]
     Dosage: UNK
     Route: 058
     Dates: start: 19901201
  9. PREMARIN [Concomitant]
     Dates: start: 19920101
  10. AMOXIL [Concomitant]
     Dates: start: 19970924
  11. PREDNISONE TAB [Concomitant]
  12. TRICOR [Concomitant]
     Dates: start: 20000922
  13. ASPIRIN [Concomitant]
     Dates: start: 20001111
  14. GLUCOTROL XL [Suspect]
     Indication: DIABETES MELLITUS
     Dosage: BID
     Route: 048
     Dates: end: 19980924
  15. PRECOSE [Concomitant]
     Dates: start: 19970813
  16. POTASSIUM CHLORIDE [Concomitant]
     Dates: start: 19960901
  17. TIMOPTIC-XE [Concomitant]
     Dates: start: 19960601
  18. CATAPRES [Concomitant]
     Dates: start: 20001111
  19. NIACIN [Concomitant]
     Dates: start: 20001111
  20. UNSPECIFIED ANTIDEPRESSANTS [Suspect]
     Indication: BACK PAIN
     Route: 065
     Dates: start: 19970101, end: 19970101
  21. REZULIN [Suspect]
     Indication: DIABETES MELLITUS
     Dosage: 2 QAM
     Route: 065
     Dates: start: 19970301, end: 19971201
  22. REZULIN [Suspect]
     Dosage: DAILY
     Route: 065
     Dates: start: 19971202, end: 19980112
  23. PROCARDIA [Concomitant]
     Dates: start: 19960901
  24. LOPID [Suspect]
     Indication: BLOOD TRIGLYCERIDES INCREASED
     Dosage: 600 MG, UNK
     Route: 065
     Dates: start: 19941001, end: 19980924
  25. METAMUCIL-2 [Concomitant]
     Dates: start: 19990301
  26. REZULIN [Suspect]
     Dosage: DAILY
     Route: 065
     Dates: start: 19980428, end: 19980715
  27. GLUCOPHAGE [Suspect]
     Dosage: UNK
     Dates: start: 19970301, end: 19980924
  28. ALTACE [Suspect]
     Dosage: 2.5 MG, 1X/DAY
     Route: 048
     Dates: start: 19980401, end: 19980924
  29. ZOCOR [Suspect]
     Indication: ILL-DEFINED DISORDER
     Dosage: Q HS
     Route: 048
     Dates: start: 19931001, end: 19980924
  30. GLUCOPHAGE [Suspect]
     Dosage: BID
     Route: 065
     Dates: end: 19980924
  31. GLUCOPHAGE [Suspect]
     Dosage: MAXIIMUM DOSE
     Dates: start: 19991214
  32. NIZORAL CREAM [Concomitant]
     Dates: start: 19970813
  33. HUMALOG REGULAR INSULIN [Concomitant]
     Dosage: UNK
     Dates: start: 19901201
  34. ZAROXOLYN [Concomitant]
  35. LAC-HYDRIN [Concomitant]

REACTIONS (95)
  - ANXIETY [None]
  - PHYSICAL DISABILITY [None]
  - ECZEMA [None]
  - HEPATOMEGALY [None]
  - ONYCHOMYCOSIS [None]
  - BLOOD THYROID STIMULATING HORMONE INCREASED [None]
  - ABSCESS [None]
  - CAROTID BRUIT [None]
  - NAUSEA [None]
  - ARTHRALGIA [None]
  - MUSCLE SPASMS [None]
  - OEDEMA [None]
  - MASS [None]
  - BLOOD CHOLESTEROL INCREASED [None]
  - ABDOMINAL PAIN [None]
  - SHOCK HYPOGLYCAEMIC [None]
  - ILL-DEFINED DISORDER [None]
  - HEPATITIS [None]
  - NERVE COMPRESSION [None]
  - CONTUSION [None]
  - JAUNDICE CHOLESTATIC [None]
  - RENAL IMPAIRMENT [None]
  - DIZZINESS [None]
  - FUNCTIONAL GASTROINTESTINAL DISORDER [None]
  - JAUNDICE [None]
  - NEPHROPATHY [None]
  - RETINOPATHY [None]
  - ROSACEA [None]
  - CEREBROVASCULAR DISORDER [None]
  - MELANOCYTIC NAEVUS [None]
  - SPINAL COLUMN STENOSIS [None]
  - EMOTIONAL DISTRESS [None]
  - MALAISE [None]
  - WEIGHT INCREASED [None]
  - RHINITIS [None]
  - FAECAL INCONTINENCE [None]
  - WEIGHT DECREASED [None]
  - FOOT DEFORMITY [None]
  - TRICUSPID VALVE INCOMPETENCE [None]
  - ABNORMAL FAECES [None]
  - UPPER EXTREMITY MASS [None]
  - FUNGAL INFECTION [None]
  - PAROTID GLAND ENLARGEMENT [None]
  - PHARYNGITIS [None]
  - RASH [None]
  - VENOUS INSUFFICIENCY [None]
  - GASTROOESOPHAGEAL REFLUX DISEASE [None]
  - GLAUCOMA [None]
  - ACNE [None]
  - HYPERKERATOSIS [None]
  - FATIGUE [None]
  - DIABETES MELLITUS [None]
  - THROMBOCYTOPENIA [None]
  - EATING DISORDER [None]
  - CUSHINGOID [None]
  - DIARRHOEA [None]
  - NEOPLASM [None]
  - VOMITING [None]
  - HEPATIC CIRRHOSIS [None]
  - CATARACT [None]
  - SEBORRHOEIC DERMATITIS [None]
  - DERMATITIS [None]
  - STASIS DERMATITIS [None]
  - CARDIOVASCULAR DISORDER [None]
  - PAIN [None]
  - CONSTIPATION [None]
  - BLOOD TRIGLYCERIDES INCREASED [None]
  - PANCREATITIS [None]
  - CARDIAC DISORDER [None]
  - PAINFUL DEFAECATION [None]
  - HAEMATOCHEZIA [None]
  - LUMBAR RADICULOPATHY [None]
  - TONSILLITIS [None]
  - FLUID RETENTION [None]
  - EAR PAIN [None]
  - DYSPHAGIA [None]
  - BILIARY CIRRHOSIS [None]
  - LIVER DISORDER [None]
  - DRUG INTOLERANCE [None]
  - OESOPHAGEAL SPASM [None]
  - CARPAL TUNNEL SYNDROME [None]
  - MACULAR OEDEMA [None]
  - MACULOPATHY [None]
  - MULTIPLE SCLEROSIS [None]
  - HEPATOTOXICITY [None]
  - MENTAL IMPAIRMENT [None]
  - UPPER RESPIRATORY TRACT INFECTION [None]
  - BACK PAIN [None]
  - SINUSITIS [None]
  - ATROPHIC VULVOVAGINITIS [None]
  - CARDIOMEGALY [None]
  - ANAL PRURITUS [None]
  - NEUROPATHY PERIPHERAL [None]
  - BILE DUCT STONE [None]
  - RASH ERYTHEMATOUS [None]
